FAERS Safety Report 17495712 (Version 1)
Quarter: 2020Q1

REPORT INFORMATION
  Report Type: Spontaneous
  Country: US (occurrence: US)
  Receive Date: 20200304
  Receipt Date: 20200304
  Transmission Date: 20200409
  Serious: No
  Sender: FDA-Public Use
  Company Number: US-PFIZER INC-2020095607

PATIENT
  Sex: Male

DRUGS (1)
  1. VIAGRA [Suspect]
     Active Substance: SILDENAFIL CITRATE
     Dosage: 50 MG (SINCE 3-4 WEEKS. HE TAKES IT IN THE MORNING)

REACTIONS (2)
  - Therapeutic product effect incomplete [Unknown]
  - Spontaneous penile erection [Unknown]
